FAERS Safety Report 13876085 (Version 3)
Quarter: 2017Q3

REPORT INFORMATION
  Report Type: Spontaneous
  Country: US (occurrence: US)
  Receive Date: 20170817
  Receipt Date: 20170928
  Transmission Date: 20171127
  Serious: No
  Sender: FDA-Public Use
  Company Number: US-PFIZER INC-2017354232

PATIENT
  Age: 69 Year
  Sex: Female
  Weight: 78 kg

DRUGS (19)
  1. ECOTRIN [Concomitant]
     Active Substance: ASPIRIN
     Indication: ARTERIAL OCCLUSIVE DISEASE
     Dosage: 325 MG, 1X/DAY
     Dates: start: 200510
  2. ECOTRIN [Concomitant]
     Active Substance: ASPIRIN
     Dosage: 81 MG, UNK
  3. TRAMADOL. [Concomitant]
     Active Substance: TRAMADOL
     Indication: NECK SURGERY
  4. TRAMADOL. [Concomitant]
     Active Substance: TRAMADOL
     Indication: ARTHRITIS
  5. VITAMIN D3 [Concomitant]
     Active Substance: CHOLECALCIFEROL
     Dosage: UNK
  6. LOVASTATIN. [Concomitant]
     Active Substance: LOVASTATIN
     Indication: BLOOD PRESSURE ABNORMAL
     Dosage: 40 MG, 1X/DAY (NIGHT)
     Dates: start: 2005
  7. LYRICA [Suspect]
     Active Substance: PREGABALIN
     Indication: PAIN IN EXTREMITY
     Dosage: 25 MG, 3X/DAY ( THREE TIMES A DAY)
     Route: 048
     Dates: start: 201708
  8. METOPROLOL. [Concomitant]
     Active Substance: METOPROLOL
     Indication: BLOOD PRESSURE ABNORMAL
     Dosage: 100 MG, 1X/DAY
     Dates: start: 2005
  9. PEPCID /00305201/ [Concomitant]
     Active Substance: ALUMINUM HYDROXIDE\MAGNESIUM CARBONATE
     Indication: GASTROOESOPHAGEAL REFLUX DISEASE
     Dosage: UNK
  10. LYRICA [Suspect]
     Active Substance: PREGABALIN
     Indication: HAEMATOMA
     Dosage: UNK, TWO TIMES A DAY (JUST ONE IN THE MORNING AND ONE AT NIGHT TIME)
     Route: 048
     Dates: start: 20170809, end: 201708
  11. ZYRTEC [Concomitant]
     Active Substance: CETIRIZINE HYDROCHLORIDE
     Indication: ALLERGIC SINUSITIS
     Dosage: 10 MG, 1X/DAY
  12. TRAMADOL. [Concomitant]
     Active Substance: TRAMADOL
     Indication: KNEE OPERATION
  13. TRAMADOL. [Concomitant]
     Active Substance: TRAMADOL
     Indication: PAIN
     Dosage: 100 MG (TWO 50MG), 1X/DAY (NIGHT)
  14. TRAMADOL. [Concomitant]
     Active Substance: TRAMADOL
     Indication: SPINAL OPERATION
  15. PROTONIX /00661201/ [Concomitant]
     Active Substance: OMEPRAZOLE
     Indication: GASTROOESOPHAGEAL REFLUX DISEASE
     Dosage: 40 MG, 1X/DAY
  16. LYRICA [Suspect]
     Active Substance: PREGABALIN
     Indication: CELLULITIS
     Dosage: 50 MG, THREE TIMES A DAY
     Route: 048
     Dates: start: 20170808, end: 20170808
  17. LOVASTATIN. [Concomitant]
     Active Substance: LOVASTATIN
     Indication: BLOOD CHOLESTEROL ABNORMAL
  18. POTASSIUM [Concomitant]
     Active Substance: POTASSIUM
     Dosage: UNK
  19. PLAVIX [Concomitant]
     Active Substance: CLOPIDOGREL BISULFATE
     Indication: ARTERIAL OCCLUSIVE DISEASE
     Dosage: 75 MG, 1X/DAY (MORNING)
     Dates: start: 200510

REACTIONS (5)
  - Malaise [Unknown]
  - Dizziness [Recovered/Resolved]
  - Somnolence [Unknown]
  - Burning sensation [Unknown]
  - Paraesthesia [Unknown]

NARRATIVE: CASE EVENT DATE: 201708
